FAERS Safety Report 4456005-8 (Version None)
Quarter: 2004Q3

REPORT INFORMATION
  Report Type: 
  Country: None (occurrence: None)
  Receive Date: 20040922
  Receipt Date: 20040820
  Transmission Date: 20050211
  Serious: Yes (Hospitalization)
  Sender: FDA-Public Use
  Company Number: JP-BRISTOL-MYERS SQUIBB COMPANY-12686820

PATIENT
  Age: 92 Year
  Sex: Female

DRUGS (13)
  1. GATIFLO TABS 100 MG [Suspect]
     Indication: BRONCHITIS ACUTE
     Route: 048
     Dates: start: 20040724, end: 20040727
  2. GLUFAST [Suspect]
     Indication: DIABETES MELLITUS
     Route: 048
     Dates: start: 20040603, end: 20040727
  3. DIGITOXIN [Concomitant]
     Dosage: DOSAGE FORM = TABLET
     Route: 048
     Dates: start: 20010531
  4. LASIX [Concomitant]
     Dosage: DOSAGE FORM = TABLET
     Route: 048
     Dates: start: 20010531
  5. ZANTAC [Concomitant]
     Route: 048
  6. MUCOSTA [Concomitant]
     Route: 048
     Dates: end: 20040727
  7. SALOBEL [Concomitant]
     Route: 048
     Dates: start: 20010531
  8. ALDACTONE-A [Concomitant]
     Dosage: DOSAGE FORM = TABLET
     Route: 048
     Dates: start: 20010531
  9. NAUZELIN [Concomitant]
     Route: 048
     Dates: end: 20040727
  10. SOLULACT [Concomitant]
     Dosage: 250 ML ON 24-JUL-2004
     Route: 041
     Dates: start: 20040724, end: 20040727
  11. FESIN [Concomitant]
     Route: 041
     Dates: start: 20040724, end: 20040727
  12. MODACIN [Concomitant]
     Route: 041
     Dates: start: 20040724, end: 20040724
  13. NEOPHYLLIN [Concomitant]
     Route: 041
     Dates: start: 20040724, end: 20040724

REACTIONS (4)
  - CONVULSION [None]
  - DEPRESSED LEVEL OF CONSCIOUSNESS [None]
  - HYPOGLYCAEMIA [None]
  - MOVEMENT DISORDER [None]
